FAERS Safety Report 9009810 (Version 2)
Quarter: 2013Q2

REPORT INFORMATION
  Report Type: Spontaneous
  Country: FR (occurrence: FR)
  Receive Date: 20130110
  Receipt Date: 20130501
  Transmission Date: 20140414
  Serious: Yes (Disabling)
  Sender: FDA-Public Use
  Company Number: FR-009507513-1212FRA006660

PATIENT
  Age: 65 Year
  Sex: Female

DRUGS (7)
  1. SIMVASTATIN [Suspect]
  2. LODALES [Suspect]
     Dosage: UNK
     Dates: start: 2011
  3. DEPAMIDE [Concomitant]
     Dosage: UNK
  4. METFORMIN [Concomitant]
     Dosage: UNK
  5. AMLOR [Concomitant]
     Dosage: UNK
  6. KARDEGIC [Concomitant]
     Dosage: UNK
  7. OLMESARTAN MEDOXOMIL [Concomitant]
     Dosage: UNK

REACTIONS (1)
  - Joint effusion [Unknown]
